FAERS Safety Report 5987532-X (Version None)
Quarter: 2008Q4

REPORT INFORMATION
  Report Type: 
  Country: None (occurrence: None)
  Receive Date: 20081209
  Receipt Date: 20081128
  Transmission Date: 20090506
  Serious: Yes (Death, Hospitalization, Other)
  Sender: FDA-Public Use
  Company Number: CA-ELI_LILLY_AND_COMPANY-CA200812000155

PATIENT
  Age: 69 Year
  Sex: Female

DRUGS (12)
  1. FORTEO [Suspect]
     Indication: OSTEOPOROSIS
     Dosage: 20 UG, DAILY (1/D)
     Route: 058
     Dates: start: 20070920
  2. LIPITOR [Concomitant]
  3. PREVACID [Concomitant]
  4. PLAVIX [Concomitant]
  5. RAMIPRIL [Concomitant]
  6. ALTACE [Concomitant]
  7. SYNTHROID [Concomitant]
  8. MONOCOR [Concomitant]
  9. CALCIUM [Concomitant]
  10. VITAMIN D [Concomitant]
  11. ESTER-C [Concomitant]
  12. TYLENOL                                 /SCH/ [Concomitant]

REACTIONS (1)
  - AMYOTROPHIC LATERAL SCLEROSIS [None]
